FAERS Safety Report 10682387 (Version 1)
Quarter: 2014Q4

REPORT INFORMATION
  Report Type: Spontaneous
  Country: US (occurrence: None)
  Receive Date: 20141229
  Receipt Date: 20141229
  Transmission Date: 20150529
  Serious: Yes (Disabling)
  Sender: FDA-Public Use
  Company Number: None

PATIENT
  Age: 48 Year

DRUGS (4)
  1. DULOXETINE [Suspect]
     Active Substance: DULOXETINE
     Indication: PANIC DISORDER
     Route: 048
  2. DULOXETINE [Suspect]
     Active Substance: DULOXETINE
     Indication: DEPRESSION
     Route: 048
  3. DULOXETINE [Suspect]
     Active Substance: DULOXETINE
     Indication: SOCIAL PHOBIA
     Route: 048
  4. DULOXETINE [Suspect]
     Active Substance: DULOXETINE
     Indication: ANXIETY
     Route: 048

REACTIONS (6)
  - Aggression [None]
  - Personality change [None]
  - Product substitution issue [None]
  - Condition aggravated [None]
  - Social phobia [None]
  - Agitation [None]

NARRATIVE: CASE EVENT DATE: 20141201
